FAERS Safety Report 9226852 (Version 1)
Quarter: 2013Q2

REPORT INFORMATION
  Report Type: Spontaneous
  Country: IT (occurrence: None)
  Receive Date: 20130410
  Receipt Date: 20130410
  Transmission Date: 20140414
  Serious: Yes (Hospitalization)
  Sender: FDA-Public Use
  Company Number: FK201301036

PATIENT
  Age: 86 Year
  Sex: Female

DRUGS (4)
  1. FUROSEMIDE (FUROSEMIDE) [Suspect]
     Indication: HYPERTENSION
  2. METHYLPREDNISOLONE [Suspect]
     Indication: CHRONIC OBSTRUCTIVE PULMONARY DISEASE
     Route: 030
  3. CIPROFLOXACIN (CIPROFLOXACIN) [Concomitant]
  4. ACETYLCYSTEINE [Concomitant]

REACTIONS (12)
  - Hypocalcaemia [None]
  - Cardiac failure [None]
  - Cyanosis [None]
  - Palpitations [None]
  - Hyperhidrosis [None]
  - Pulmonary oedema [None]
  - Extrasystoles [None]
  - Electrocardiogram QT prolonged [None]
  - Tricuspid valve incompetence [None]
  - Mitral valve incompetence [None]
  - Left atrial dilatation [None]
  - Right atrial dilatation [None]
